FAERS Safety Report 7661909-9 (Version None)
Quarter: 2011Q3

REPORT INFORMATION
  Report Type: 
  Country: None (occurrence: None)
  Receive Date: 20110805
  Receipt Date: 20101209
  Transmission Date: 20111222
  Serious: No
  Sender: FDA-Public Use
  Company Number: US-ABBOTT-10P-163-0691635-00

PATIENT
  Age: 89 Year
  Sex: Female

DRUGS (3)
  1. UNKNOWN MEDICATION [Concomitant]
     Indication: HYPERTENSION
  2. ASPIRIN [Concomitant]
     Indication: FLUSHING
  3. NIASPAN [Suspect]
     Indication: HIGH DENSITY LIPOPROTEIN DECREASED
     Dosage: 1 DOSE

REACTIONS (7)
  - PYREXIA [None]
  - FLUSHING [None]
  - INCOHERENT [None]
  - UNRESPONSIVE TO STIMULI [None]
  - BRONCHITIS [None]
  - BURNING SENSATION [None]
  - ASTHENIA [None]
